FAERS Safety Report 6566123-6 (Version None)
Quarter: 2010Q1

REPORT INFORMATION
  Report Type: 
  Country: None (occurrence: None)
  Receive Date: 20100202
  Receipt Date: 20100122
  Transmission Date: 20100710
  Serious: Yes (Hospitalization)
  Sender: FDA-Public Use
  Company Number: US-JNJFOC-20100110073

PATIENT
  Age: 43 Year
  Sex: Female
  Weight: 53.52 kg

DRUGS (8)
  1. EXTRA STRENGTH TYLENOL PM [Suspect]
     Indication: PAIN
     Route: 048
     Dates: start: 20100102, end: 20100121
  2. EXTRA STRENGTH TYLENOL PM [Suspect]
     Indication: SLEEP DISORDER THERAPY
     Route: 048
     Dates: start: 20100102, end: 20100121
  3. AMILORIDE HYDROCHLORIDE [Concomitant]
     Indication: RENAL DISORDER
  4. FLOMAX [Concomitant]
     Indication: BLADDER DISORDER
  5. VICODIN [Concomitant]
     Indication: PAIN
  6. NABUMETONE [Concomitant]
     Indication: ARTHRALGIA
  7. PROZAC [Concomitant]
     Indication: RENAL DISORDER
  8. MORPHINE SULFATE [Concomitant]
     Indication: PAIN

REACTIONS (8)
  - BLOOD POTASSIUM DECREASED [None]
  - DEHYDRATION [None]
  - NAUSEA [None]
  - PRODUCT ODOUR ABNORMAL [None]
  - PRODUCT QUALITY ISSUE [None]
  - PRODUCT TASTE ABNORMAL [None]
  - VOMITING [None]
  - WEIGHT DECREASED [None]
